FAERS Safety Report 6517868-5 (Version None)
Quarter: 2009Q4

REPORT INFORMATION
  Report Type: 
  Country: None (occurrence: None)
  Receive Date: 20091224
  Receipt Date: 20091221
  Transmission Date: 20100525
  Serious: Yes (Hospitalization)
  Sender: FDA-Public Use
  Company Number: FR-SANOFI-AVENTIS-2009SA010452

PATIENT
  Age: 58 Year
  Sex: Female

DRUGS (3)
  1. DOCETAXEL [Suspect]
     Indication: BREAST CANCER
     Route: 041
     Dates: start: 19971127, end: 19980319
  2. ADRIBLASTINE [Suspect]
     Indication: BREAST CANCER
     Route: 042
     Dates: start: 19971127, end: 19980319
  3. ENDOXAN [Suspect]
     Indication: BREAST CANCER
     Dates: start: 19971127, end: 19980319

REACTIONS (1)
  - BENIGN ANORECTAL NEOPLASM [None]
